FAERS Safety Report 18622417 (Version 1)
Quarter: 2020Q4

REPORT INFORMATION
  Report Type: Spontaneous
  Country: ZA (occurrence: ZA)
  Receive Date: 20201216
  Receipt Date: 20201216
  Transmission Date: 20210114
  Serious: Yes (Other)
  Sender: FDA-Public Use
  Company Number: ZA-PFIZER INC-2020495044

PATIENT
  Age: 69 Year
  Sex: Male

DRUGS (2)
  1. METHOTREXATE. [Suspect]
     Active Substance: METHOTREXATE
     Dosage: 20 MG, DAILY
     Dates: start: 201705
  2. PREDNISONE. [Suspect]
     Active Substance: PREDNISONE
     Dosage: 7.5 MG
     Dates: start: 202001

REACTIONS (4)
  - Aspartate aminotransferase increased [Unknown]
  - Drug ineffective [Unknown]
  - Alanine aminotransferase increased [Unknown]
  - Polyarthritis [Unknown]

NARRATIVE: CASE EVENT DATE: 20201023
